FAERS Safety Report 4640060-6 (Version None)
Quarter: 2005Q2

REPORT INFORMATION
  Report Type: 
  Country: None (occurrence: None)
  Receive Date: 20050415
  Receipt Date: 20050415
  Transmission Date: 20051028
  Serious: No
  Sender: FDA-Public Use
  Company Number: None

PATIENT
  Age: 68 Year
  Sex: Male
  Weight: 102 kg

DRUGS (16)
  1. TERAZOSIN 10 MG [Suspect]
     Indication: BENIGN PROSTATIC HYPERPLASIA
     Dosage: 10 MG BEDTIME ORAL
     Route: 048
     Dates: start: 20050222, end: 20050314
  2. ASPIRIN [Concomitant]
  3. COLACE [Concomitant]
  4. FELODIPINE [Concomitant]
  5. GEMFIBROZIL [Concomitant]
  6. GLIPIZIDE [Concomitant]
  7. HALDOL [Concomitant]
  8. INSULIN [Concomitant]
  9. IMDUR [Concomitant]
  10. LEVO [Concomitant]
  11. DARVOCET [Concomitant]
  12. ZOLOFT [Concomitant]
  13. BACTRIM DS [Concomitant]
  14. RESTORIL [Concomitant]
  15. UA BAG [Concomitant]
  16. SILVADENE [Concomitant]

REACTIONS (2)
  - BLOOD PRESSURE DECREASED [None]
  - POSTURE ABNORMAL [None]
